FAERS Safety Report 10198859 (Version 1)
Quarter: 2014Q2

REPORT INFORMATION
  Report Type: Spontaneous
  Country: US (occurrence: US)
  Receive Date: 20140527
  Receipt Date: 20140527
  Transmission Date: 20141212
  Serious: Yes (Other)
  Sender: FDA-Public Use
  Company Number: US-TAKEDA-2014TUS004150

PATIENT
  Sex: Female

DRUGS (2)
  1. ACTOS [Suspect]
     Dosage: UNK
  2. GLUCOPHAGE [Suspect]
     Dosage: UNK

REACTIONS (1)
  - Pancreatic cyst [Unknown]
